FAERS Safety Report 9321046 (Version 2)
Quarter: 2013Q2

REPORT INFORMATION
  Report Type: Report from Study
  Country: IT (occurrence: None)
  Receive Date: 20130528
  Receipt Date: 20130528
  Transmission Date: 20140414
  Serious: Yes (Congenital Anomaly)
  Sender: FDA-Public Use
  Company Number: 2012AP003535

PATIENT
  Sex: Male

DRUGS (1)
  1. FERRIPROX [Suspect]
     Route: 064

REACTIONS (9)
  - Hemivertebra [None]
  - Renal hypoplasia [None]
  - Caesarean section [None]
  - Breech presentation [None]
  - Anal atresia [None]
  - Nephroptosis [None]
  - Ventricular septal defect [None]
  - Unevaluable event [None]
  - Urethral fistula [None]
